FAERS Safety Report 16339868 (Version 2)
Quarter: 2019Q4

REPORT INFORMATION
  Report Type: Report from Study
  Country: US (occurrence: US)
  Receive Date: 20190521
  Receipt Date: 20191217
  Transmission Date: 20200122
  Serious: Yes (Other)
  Sender: FDA-Public Use
  Company Number: PHEH2019US021586

PATIENT
  Age: 53 Year
  Sex: Female

DRUGS (1)
  1. GILENYA [Suspect]
     Active Substance: FINGOLIMOD HYDROCHLORIDE
     Indication: PRODUCT USED FOR UNKNOWN INDICATION
     Dosage: UNK
     Route: 065
     Dates: start: 20180801

REACTIONS (5)
  - Musculoskeletal disorder [Unknown]
  - Lymphadenopathy [Unknown]
  - Lymphocyte count decreased [Unknown]
  - Coccidioidomycosis [Unknown]
  - Malaise [Unknown]

NARRATIVE: CASE EVENT DATE: 20190410
